FAERS Safety Report 11490972 (Version 3)
Quarter: 2017Q1

REPORT INFORMATION
  Report Type: Spontaneous
  Country: US (occurrence: US)
  Receive Date: 20150910
  Receipt Date: 20170302
  Transmission Date: 20170428
  Serious: Yes (Hospitalization, Other)
  Sender: FDA-Public Use
  Company Number: US-ELI_LILLY_AND_COMPANY-US201509001372

PATIENT
  Sex: Female
  Weight: 93 kg

DRUGS (1)
  1. CYMBALTA [Suspect]
     Active Substance: DULOXETINE HYDROCHLORIDE
     Indication: DEPRESSION
     Dosage: 60 MG, QD
     Route: 048
     Dates: start: 201305, end: 201409

REACTIONS (20)
  - Dizziness [Unknown]
  - Nausea [Unknown]
  - Mood swings [Unknown]
  - Affect lability [Unknown]
  - Vertigo [Unknown]
  - Irritability [Unknown]
  - Drug withdrawal syndrome [Unknown]
  - Dysphoria [Unknown]
  - Insomnia [Unknown]
  - Back pain [Unknown]
  - Hyperhidrosis [Unknown]
  - Weight increased [Unknown]
  - Agitation [Unknown]
  - Paraesthesia [Unknown]
  - Vomiting [Unknown]
  - Diarrhoea [Unknown]
  - Depression [Unknown]
  - Fatigue [Unknown]
  - Suicidal ideation [Unknown]
  - Headache [Unknown]
